FAERS Safety Report 23326344 (Version 2)
Quarter: 2023Q4

REPORT INFORMATION
  Report Type: Spontaneous
  Country: US (occurrence: US)
  Receive Date: 20231221
  Receipt Date: 20231222
  Transmission Date: 20240110
  Serious: No
  Sender: FDA-Public Use
  Company Number: US-ABBVIE-5550367

PATIENT
  Sex: Female

DRUGS (1)
  1. CREON [Suspect]
     Active Substance: PANCRELIPASE AMYLASE\PANCRELIPASE LIPASE\PANCRELIPASE PROTEASE
     Indication: Product used for unknown indication
     Route: 048

REACTIONS (8)
  - Vomiting [Recovering/Resolving]
  - Malabsorption [Unknown]
  - Abdominal pain upper [Unknown]
  - Abdominal distension [Recovering/Resolving]
  - Abdominal pain [Recovering/Resolving]
  - Abnormal faeces [Unknown]
  - Diarrhoea [Recovering/Resolving]
  - Feeding disorder [Unknown]

NARRATIVE: CASE EVENT DATE: 20231212
